FAERS Safety Report 9442652 (Version 2)
Quarter: 2013Q3

REPORT INFORMATION
  Report Type: Spontaneous
  Country: PL (occurrence: PL)
  Receive Date: 20130806
  Receipt Date: 20130812
  Transmission Date: 20140515
  Serious: Yes (Life-Threatening, Hospitalization, Other)
  Sender: FDA-Public Use
  Company Number: PL-MERCK-1307POL015506

PATIENT
  Age: 69 Year
  Sex: Female
  Weight: 66 kg

DRUGS (4)
  1. VICTRELIS [Suspect]
     Indication: HEPATITIS C
     Dosage: 800 MG, TID
     Route: 048
     Dates: start: 20130710, end: 20130715
  2. PEGINTRON [Suspect]
     Indication: HEPATITIS C
     Dosage: 100 MICROGRAM, QW
     Route: 058
     Dates: start: 20130612, end: 20130715
  3. REBETOL [Suspect]
     Indication: HEPATITIS C
     Dosage: UNK
     Route: 048
     Dates: start: 20130612, end: 20130715
  4. EUTHYROX [Concomitant]
     Indication: HYPERTHYROIDISM
     Dosage: UNK
     Route: 048
     Dates: start: 20120617

REACTIONS (6)
  - Klebsiella sepsis [Recovered/Resolved]
  - Escherichia sepsis [Recovered/Resolved]
  - Respiratory failure [Recovered/Resolved]
  - Bacterial sepsis [Recovered/Resolved]
  - Tachycardia [Recovered/Resolved]
  - Renal failure [Recovered/Resolved]
